FAERS Safety Report 5968310 (Version 2)
Quarter: 2017Q2

REPORT INFORMATION
  Report Type: Spontaneous
  Country: HR (occurrence: HR)
  Receive Date: 20060125
  Receipt Date: 20170601
  Transmission Date: 20170830
  Serious: Yes (Life-Threatening, Hospitalization)
  Sender: FDA-Public Use
  Company Number: PHBS2006HR01182

PATIENT
  Age: 19 Year
  Sex: Male

DRUGS (1)
  1. TEGRETOL [Suspect]
     Active Substance: CARBAMAZEPINE
     Indication: PRODUCT USED FOR UNKNOWN INDICATION
     Dosage: 50 X 200 MG ONCE/SINGLE
     Route: 048

REACTIONS (13)
  - Respiratory distress [Recovered/Resolved]
  - Bundle branch block right [Recovered/Resolved]
  - Intentional overdose [Recovered/Resolved]
  - Toxicity to various agents [Unknown]
  - Vomiting [Recovered/Resolved]
  - Pyrexia [Recovered/Resolved]
  - Nystagmus [Recovered/Resolved]
  - Hypokalaemia [Recovered/Resolved]
  - Suicide attempt [Unknown]
  - Myoclonic epilepsy [Recovered/Resolved]
  - Sinus tachycardia [Recovered/Resolved]
  - Stupor [Recovered/Resolved]
  - Loss of consciousness [Recovered/Resolved]
